FAERS Safety Report 19020806 (Version 1)
Quarter: 2021Q1

REPORT INFORMATION
  Report Type: Spontaneous
  Country: AR (occurrence: AR)
  Receive Date: 20210317
  Receipt Date: 20210317
  Transmission Date: 20210420
  Serious: Yes (Other)
  Sender: FDA-Public Use
  Company Number: AR-BAYER-2021-105309

PATIENT
  Age: 56 Year
  Sex: Female

DRUGS (4)
  1. LAROTRECTINIB [Suspect]
     Active Substance: LAROTRECTINIB
     Indication: THYROID CANCER
     Dosage: 200 MG/DAY (100 MG TWICE DAILY)
     Dates: start: 201909
  2. SORAFENIB (RAF KINASE INHIBITOR) [Suspect]
     Active Substance: SORAFENIB
     Indication: THYROID CANCER METASTATIC
     Dosage: 600 MG DAILY
     Route: 048
     Dates: start: 201808
  3. SORAFENIB (RAF KINASE INHIBITOR) [Suspect]
     Active Substance: SORAFENIB
     Indication: THYROID CANCER METASTATIC
     Dosage: 800 MG DAILY
     Route: 048
     Dates: start: 201808
  4. ZOLEDRONIC ACID [Concomitant]
     Active Substance: ZOLEDRONIC ACID
     Dosage: 4 MG/MONTH
     Route: 042
     Dates: start: 201808

REACTIONS (4)
  - Hepatic enzyme increased [None]
  - Fatigue [None]
  - Metastases to central nervous system [None]
  - Palmar-plantar erythrodysaesthesia syndrome [None]

NARRATIVE: CASE EVENT DATE: 201808
